FAERS Safety Report 17550037 (Version 9)
Quarter: 2020Q4

REPORT INFORMATION
  Report Type: Spontaneous
  Country: US (occurrence: US)
  Receive Date: 20200317
  Receipt Date: 20201229
  Transmission Date: 20210113
  Serious: Yes (Other)
  Sender: FDA-Public Use
  Company Number: US-JNJFOC-20200319574

PATIENT
  Age: 71 Year
  Sex: Male
  Weight: 93.52 kg

DRUGS (3)
  1. RISPERDAL [Suspect]
     Active Substance: RISPERIDONE
     Indication: ANXIETY
     Route: 048
     Dates: start: 2002, end: 201912
  2. RISPERDAL [Suspect]
     Active Substance: RISPERIDONE
     Indication: ANXIETY
     Dosage: DOSE: 1 MG/ML
     Route: 048
     Dates: start: 2002, end: 201912
  3. RISPERDAL [Suspect]
     Active Substance: RISPERIDONE
     Dosage: TOOK 0.5 MLS AND 0.25 MLS
     Route: 048

REACTIONS (12)
  - Drug hypersensitivity [Unknown]
  - Hallucination [Unknown]
  - Product complaint [Unknown]
  - Intentional product misuse [Unknown]
  - Fear [Unknown]
  - Withdrawal syndrome [Not Recovered/Not Resolved]
  - Adverse drug reaction [Unknown]
  - Gait disturbance [Not Recovered/Not Resolved]
  - Impaired driving ability [Unknown]
  - Drug ineffective [Unknown]
  - Disorientation [Unknown]
  - Dizziness [Unknown]

NARRATIVE: CASE EVENT DATE: 20201117
